FAERS Safety Report 5730245-X (Version None)
Quarter: 2008Q2

REPORT INFORMATION
  Report Type: 
  Country: None (occurrence: None)
  Receive Date: 20080502
  Receipt Date: 20061130
  Transmission Date: 20081010
  Serious: Yes (Hospitalization)
  Sender: FDA-Public Use
  Company Number: TPG2006A00544

PATIENT
  Age: 47 Year
  Sex: Male

DRUGS (1)
  1. LANSOPRAZOLE [Suspect]
     Indication: GASTROOESOPHAGEAL REFLUX DISEASE
     Dosage: 30 MG (15 MG, 2 IN 1 D) PER ORAL
     Route: 048
     Dates: start: 20030114

REACTIONS (1)
  - GASTROINTESTINAL STROMAL TUMOUR [None]
